FAERS Safety Report 9691187 (Version 1)
Quarter: 2013Q4

REPORT INFORMATION
  Report Type: Spontaneous
  Country: US (occurrence: US)
  Receive Date: 20131115
  Receipt Date: 20131115
  Transmission Date: 20140711
  Serious: Yes (Other)
  Sender: FDA-Public Use
  Company Number: US-MPIJNJ-2013MPI000887

PATIENT
  Sex: 0

DRUGS (3)
  1. VELCADE [Suspect]
     Indication: PLASMA CELL MYELOMA
     Dosage: UNK, ON DAYS 1, 4, 8 AND 11 OF A 21-DAY CYCLE
     Route: 042
  2. POMALIDOMIDE [Suspect]
     Indication: PLASMA CELL MYELOMA
     Dosage: UNK, ON DAYS 1-14 OF A 21-DAY CYCLE
  3. DEXAMETHASONE [Suspect]
     Indication: PLASMA CELL MYELOMA
     Dosage: UNK, ON DAYS 1-2, 4-5, 8-9 AND 11-12 OF A 21-DAY CYCLE

REACTIONS (1)
  - Pancreatic carcinoma metastatic [Unknown]
